FAERS Safety Report 5032304-6 (Version None)
Quarter: 2006Q2

REPORT INFORMATION
  Report Type: 
  Country: None (occurrence: None)
  Receive Date: 20060622
  Receipt Date: 20060614
  Transmission Date: 20061013
  Serious: Yes (Hospitalization)
  Sender: FDA-Public Use
  Company Number: BE-JNJFOC-20060603517

PATIENT
  Age: 52 Year
  Sex: Male

DRUGS (2)
  1. REMICADE [Suspect]
     Indication: ANKYLOSING SPONDYLITIS
     Dosage: FIFTEEN INFUSIONS
     Route: 042
  2. FELDENE [Concomitant]
     Indication: PAIN
     Route: 065

REACTIONS (1)
  - LEGIONELLA INFECTION [None]
